FAERS Safety Report 7636391-8 (Version None)
Quarter: 2011Q3

REPORT INFORMATION
  Report Type: 
  Country: None (occurrence: None)
  Receive Date: 20110719
  Receipt Date: 20110708
  Transmission Date: 20111222
  Serious: Yes (Other)
  Sender: FDA-Public Use
  Company Number: 2010SP059349

PATIENT
  Age: 30 Year
  Sex: Female
  Weight: 76 kg

DRUGS (4)
  1. DESOGESTREL AND ETHINYL ESTRADIOL [Suspect]
     Indication: CONTRACEPTION
     Dosage: QD, PO
     Route: 048
     Dates: start: 20100601
  2. NORFLOXACIN [Suspect]
     Indication: URINARY TRACT INFECTION
     Dosage: 400 MG;
  3. AZITHROMYCIN [Suspect]
     Indication: PNEUMONIA
     Dosage: 500 MG,
  4. PHENAZOPYRIDINE HCL TAB [Suspect]
     Indication: URINARY TRACT INFECTION

REACTIONS (4)
  - URINARY TRACT INFECTION [None]
  - PNEUMONIA [None]
  - INAPPROPRIATE SCHEDULE OF DRUG ADMINISTRATION [None]
  - ABNORMAL WITHDRAWAL BLEEDING [None]
